FAERS Safety Report 25632322 (Version 1)
Quarter: 2025Q3

REPORT INFORMATION
  Report Type: Spontaneous
  Country: US (occurrence: US)
  Receive Date: 20250801
  Receipt Date: 20250801
  Transmission Date: 20251020
  Serious: Yes (Hospitalization, Other)
  Sender: Kenvue
  Company Number: None

PATIENT
  Age: 66 Year
  Sex: Male

DRUGS (1)
  1. IBUPROFEN [Suspect]
     Active Substance: IBUPROFEN
     Indication: Back pain
     Dosage: 800 MILLIGRAM, EVERY 4 HOUR (CHRONIC USE)
     Route: 065

REACTIONS (6)
  - Fistula of small intestine [Unknown]
  - Colonic fistula [Unknown]
  - Duodenal ulcer perforation [Unknown]
  - Chronic gastritis [Unknown]
  - Intestinal metaplasia [Unknown]
  - Haemoglobin decreased [Unknown]
